FAERS Safety Report 20263674 (Version 1)
Quarter: 2021Q4

REPORT INFORMATION
  Report Type: Spontaneous
  Country: US (occurrence: None)
  Receive Date: 20211231
  Receipt Date: 20211231
  Transmission Date: 20220303
  Serious: Yes (Other)
  Sender: FDA-Public Use
  Company Number: 2021A907225

PATIENT
  Sex: Male

DRUGS (1)
  1. FARXIGA [Suspect]
     Active Substance: DAPAGLIFLOZIN PROPANEDIOL
     Route: 048
     Dates: start: 202107

REACTIONS (8)
  - Phimosis [Unknown]
  - Penis injury [Unknown]
  - Fungal infection [Unknown]
  - Pain [Unknown]
  - Genital injury [Unknown]
  - Anxiety [Unknown]
  - Oliguria [Unknown]
  - Pollakiuria [Unknown]
